FAERS Safety Report 5531191-7 (Version None)
Quarter: 2007Q4

REPORT INFORMATION
  Report Type: 
  Country: None (occurrence: None)
  Receive Date: 20071130
  Receipt Date: 20071120
  Transmission Date: 20080405
  Serious: Yes (Other)
  Sender: FDA-Public Use
  Company Number: GB-PFIZER INC-2007099765

PATIENT
  Age: 31 Year
  Sex: Female

DRUGS (2)
  1. CHAMPIX [Suspect]
     Route: 048
  2. DEPO-PROVERA SUSPENSION/INJ [Suspect]

REACTIONS (1)
  - METRORRHAGIA [None]
